FAERS Safety Report 16390219 (Version 1)
Quarter: 2019Q2

REPORT INFORMATION
  Report Type: Spontaneous
  Country: DE (occurrence: DE)
  Receive Date: 20190604
  Receipt Date: 20190604
  Transmission Date: 20190711
  Serious: Yes (Other)
  Sender: FDA-Public Use
  Company Number: DE-JNJFOC-20190542615

PATIENT
  Age: 69 Year
  Sex: Male

DRUGS (3)
  1. GABAPENTIN ARISTO [Suspect]
     Active Substance: GABAPENTIN
     Indication: PAIN
     Dosage: 3-TIMES 300 MG SINCE 14 DAYS
     Route: 065
     Dates: start: 201904
  2. GABAPENTIN ARISTO [Suspect]
     Active Substance: GABAPENTIN
     Indication: PAIN
     Dosage: 3-TIMES 300 MG SINCE 14 DAYS
     Route: 065
     Dates: start: 201904
  3. FENTANYL TTS [Suspect]
     Active Substance: FENTANYL
     Indication: PAIN
     Route: 062

REACTIONS (1)
  - Monoplegia [Unknown]

NARRATIVE: CASE EVENT DATE: 20190508
